FAERS Safety Report 9343742 (Version 1)
Quarter: 2013Q2

REPORT INFORMATION
  Report Type: Report from Study
  Country: US (occurrence: US)
  Receive Date: 20130612
  Receipt Date: 20130612
  Transmission Date: 20140414
  Serious: Yes (Other)
  Sender: FDA-Public Use
  Company Number: US-JNJFOC-20130601518

PATIENT
  Sex: Female
  Weight: 73.48 kg

DRUGS (11)
  1. REMICADE [Suspect]
     Indication: RHEUMATOID ARTHRITIS
     Dosage: ONCE EVERY 6 WEEKS
     Route: 042
     Dates: start: 2005
  2. METOPROLOL [Concomitant]
     Indication: DYSPNOEA
     Route: 048
     Dates: start: 201304
  3. METOPROLOL [Concomitant]
     Indication: HYPERTENSION
     Route: 048
     Dates: start: 201304
  4. OMEPRAZOLE [Concomitant]
     Indication: GASTRIC DISORDER
     Route: 048
  5. OMEPRAZOLE [Concomitant]
     Indication: PHARYNGEAL DISORDER
     Route: 048
  6. METHOTREXATE [Concomitant]
     Indication: PROPHYLAXIS
     Route: 048
     Dates: start: 2008
  7. LORATADINE [Concomitant]
     Indication: MULTIPLE ALLERGIES
     Route: 048
  8. AMLODIPINE [Concomitant]
     Indication: HYPERTENSION
     Route: 048
  9. ATORVASTATIN [Concomitant]
     Indication: BLOOD CHOLESTEROL
     Route: 048
  10. TEMAZEPAM [Concomitant]
     Indication: SLEEP DISORDER
     Dosage: EVERY NIGHT
     Route: 048
  11. QUINAPRIL [Concomitant]
     Indication: HYPERTENSION
     Route: 048

REACTIONS (1)
  - Cataract [Unknown]
